FAERS Safety Report 4947087-5 (Version None)
Quarter: 2006Q1

REPORT INFORMATION
  Report Type: 
  Country: None (occurrence: None)
  Receive Date: 20060131
  Receipt Date: 20050321
  Transmission Date: 20060701
  Serious: No
  Sender: FDA-Public Use
  Company Number: 200511876US

PATIENT

DRUGS (1)
  1. KETEK [Suspect]

REACTIONS (2)
  - DIARRHOEA [None]
  - TACHYCARDIA [None]
